FAERS Safety Report 4781019-8 (Version None)
Quarter: 2005Q3

REPORT INFORMATION
  Report Type: 
  Country: None (occurrence: None)
  Receive Date: 20050926
  Receipt Date: 20050921
  Transmission Date: 20060218
  Serious: Yes (Death)
  Sender: FDA-Public Use
  Company Number: S05-SWE-03395-01

PATIENT
  Age: 70 Year
  Sex: Female

DRUGS (10)
  1. MEMANTINE [Suspect]
     Indication: DEMENTIA ALZHEIMER'S TYPE
     Dosage: 10 MG QD PO
     Route: 048
     Dates: start: 20041013, end: 20050519
  2. CITALOPRAM [Suspect]
     Dosage: 20 MG QD PO
     Route: 048
  3. MOVICOL [Concomitant]
  4. TOPIMAX (TOPIRAMATE) [Concomitant]
  5. MIRTAZAPINE [Concomitant]
  6. ACETAMINOPHEN [Concomitant]
  7. STESOLID (DIAZEPAM) [Concomitant]
  8. PROGYNON (ESTRADIOL VALERATE) [Concomitant]
  9. LAXOBERAL [Concomitant]
  10. NOVALUZID [Concomitant]

REACTIONS (12)
  - BRONCHITIS [None]
  - CIRCULATORY COLLAPSE [None]
  - CYANOSIS [None]
  - DYSPNOEA [None]
  - FATIGUE [None]
  - HEART RATE INCREASED [None]
  - LIVEDO RETICULARIS [None]
  - OEDEMA PERIPHERAL [None]
  - PULMONARY OEDEMA [None]
  - PULSE ABSENT [None]
  - PUPILLARY REFLEX IMPAIRED [None]
  - RESPIRATORY ARREST [None]
